FAERS Safety Report 5066900-7 (Version None)
Quarter: 2006Q3

REPORT INFORMATION
  Report Type: 
  Country: None (occurrence: None)
  Receive Date: 20060801
  Receipt Date: 20060721
  Transmission Date: 20061208
  Serious: Yes (Other)
  Sender: FDA-Public Use
  Company Number: US-JNJFOC-20060705376

PATIENT
  Sex: Female
  Weight: 62.14 kg

DRUGS (11)
  1. REMICADE [Suspect]
     Indication: RHEUMATOID ARTHRITIS
     Route: 042
  2. BLOOD PRESSURE MEDICINE [Concomitant]
  3. PREDNISONE [Concomitant]
  4. LIBRAX [Concomitant]
  5. EFFEXOR [Concomitant]
  6. FOLIC ACID [Concomitant]
  7. FOSAMAX [Concomitant]
  8. ACIDEX [Concomitant]
  9. DETROL LA [Concomitant]
  10. LYRIEA [Concomitant]
  11. SULINDAC [Concomitant]

REACTIONS (1)
  - OXYGEN SATURATION DECREASED [None]
